FAERS Safety Report 19994021 (Version 3)
Quarter: 2022Q4

REPORT INFORMATION
  Report Type: Report from Study
  Country: US (occurrence: US)
  Receive Date: 20211025
  Receipt Date: 20221123
  Transmission Date: 20230112
  Serious: Yes (Other)
  Sender: FDA-Public Use
  Company Number: US-NOVARTISPH-NVSC2021US240304

PATIENT
  Sex: Female

DRUGS (1)
  1. COSENTYX [Suspect]
     Active Substance: SECUKINUMAB
     Indication: Product used for unknown indication
     Dosage: UNK
     Route: 065

REACTIONS (5)
  - Psoriatic arthropathy [Unknown]
  - Pruritus [Unknown]
  - Skin exfoliation [Unknown]
  - Arthralgia [Unknown]
  - Product use issue [Unknown]
